FAERS Safety Report 19385673 (Version 1)
Quarter: 2021Q2

REPORT INFORMATION
  Report Type: Spontaneous
  Country: US (occurrence: US)
  Receive Date: 20210605
  Receipt Date: 20210605
  Transmission Date: 20210717
  Serious: Yes (Other)
  Sender: FDA-Public Use
  Company Number: None

PATIENT
  Age: 76 Year
  Sex: Male
  Weight: 67.5 kg

DRUGS (1)
  1. PILOCARPINE HYDROCHLORIDE OPHTHALMIC SOLUTION 1% [Suspect]
     Active Substance: PILOCARPINE HYDROCHLORIDE
     Indication: GLAUCOMA
     Route: 047
     Dates: start: 20171026, end: 20171222

REACTIONS (2)
  - Vitreous detachment [None]
  - Macular fibrosis [None]

NARRATIVE: CASE EVENT DATE: 20171222
